FAERS Safety Report 23321816 (Version 3)
Quarter: 2024Q1

REPORT INFORMATION
  Report Type: Report from Study
  Country: CN (occurrence: CN)
  Receive Date: 20231220
  Receipt Date: 20240123
  Transmission Date: 20240410
  Serious: No
  Sender: FDA-Public Use
  Company Number: CN-PFIZER INC-PV202300204003

PATIENT
  Age: 67 Year
  Sex: Female
  Weight: 64 kg

DRUGS (5)
  1. NIRMATRELVIR\RITONAVIR [Suspect]
     Active Substance: NIRMATRELVIR\RITONAVIR
     Indication: COVID-19
     Dosage: [NIRMATRELVIR: 300MG] / [RITONAVIR: 100 MG], Q12H; PAXLOVID
     Route: 048
     Dates: start: 20220518, end: 20220527
  2. IRBESARTAN [Concomitant]
     Active Substance: IRBESARTAN
     Route: 065
  3. ENOXAPARIN SODIUM [Concomitant]
     Active Substance: ENOXAPARIN SODIUM
     Indication: Anticoagulant therapy
     Dosage: UNK
     Route: 058
     Dates: start: 20220518, end: 20220528
  4. AMMONIUM CHLORIDE/GLYCYRRHIZA GLABRA [Concomitant]
     Indication: COVID-19
     Dosage: UNK
     Route: 048
     Dates: start: 20220517
  5. YI QING [COPTIS SPP. RHIZOME;RHEUM SPP. ROOT WITH RHIZOME;SCUTELLARIA [Concomitant]
     Indication: COVID-19
     Dosage: UNK
     Route: 048
     Dates: start: 20220518

REACTIONS (1)
  - Overdose [Unknown]
